FAERS Safety Report 5582249-8 (Version None)
Quarter: 2007Q4

REPORT INFORMATION
  Report Type: 
  Country: None (occurrence: None)
  Receive Date: 20071130
  Receipt Date: 20070419
  Transmission Date: 20080405
  Serious: No
  Sender: FDA-Public Use
  Company Number: US200705001268

PATIENT
  Age: 65 Year
  Sex: Male

DRUGS (10)
  1. BYETTA [Suspect]
     Indication: TYPE 2 DIABETES MELLITUS
     Dosage: 5 UG, 2/D 10 UG, 2/D, SUBCUTANEOUS
     Route: 058
     Dates: start: 20050101, end: 20050101
  2. BYETTA [Suspect]
     Indication: TYPE 2 DIABETES MELLITUS
     Dosage: 5 UG, 2/D 10 UG, 2/D, SUBCUTANEOUS
     Route: 058
     Dates: start: 20050101
  3. METFORMIN HCL [Concomitant]
  4. GLIMEPIRIDE [Concomitant]
  5. AVAPRO [Concomitant]
  6. SYNTHROID [Concomitant]
  7. CHLORPROPAMIDE [Concomitant]
  8. LOTREL [Concomitant]
  9. FUROSEMIDE [Concomitant]
  10. TOPROL-XL [Concomitant]

REACTIONS (8)
  - AMNESIA [None]
  - ANXIETY [None]
  - ASTHENIA [None]
  - DECREASED APPETITE [None]
  - MUSCULOSKELETAL DISCOMFORT [None]
  - PHOTOPSIA [None]
  - POOR QUALITY SLEEP [None]
  - PRESYNCOPE [None]
